FAERS Safety Report 21758251 (Version 1)
Quarter: 2022Q4

REPORT INFORMATION
  Report Type: Spontaneous
  Country: US (occurrence: US)
  Receive Date: 20221221
  Receipt Date: 20221221
  Transmission Date: 20230112
  Serious: No
  Sender: FDA-Public Use
  Company Number: US-AMGEN-USASP2022218633

PATIENT
  Age: 69 Year
  Sex: Female

DRUGS (7)
  1. OTEZLA [Suspect]
     Active Substance: APREMILAST
     Indication: Psoriatic arthropathy
     Dosage: TITRATION PACK 28 DAY 10, 20, 30
     Route: 048
     Dates: start: 20220824
  2. ATORVASTATIN [Concomitant]
     Active Substance: ATORVASTATIN
     Indication: Product used for unknown indication
     Dosage: 10 MILLIGRAM
     Route: 065
  3. CELECOXIB [Concomitant]
     Active Substance: CELECOXIB
     Indication: Product used for unknown indication
     Dosage: 200 MILLIGRAM
     Route: 065
  4. DULOXETINE [Concomitant]
     Active Substance: DULOXETINE
     Indication: Product used for unknown indication
     Dosage: 30 MILLIGRAM
     Route: 065
  5. ESTRADIOL [Concomitant]
     Active Substance: ESTRADIOL
     Indication: Product used for unknown indication
     Dosage: 1 MILLIGRAM
     Route: 065
  6. MEDROXYPROGEST [Concomitant]
     Indication: Product used for unknown indication
     Dosage: 2.5 MILLIGRAM
     Route: 065
  7. Triamcinolon [Concomitant]
     Indication: Product used for unknown indication
     Dosage: 0.1 PERCENT
     Route: 065

REACTIONS (2)
  - Adverse reaction [Unknown]
  - Illness [Unknown]

NARRATIVE: CASE EVENT DATE: 20220101
